FAERS Safety Report 14928445 (Version 1)
Quarter: 2018Q2

REPORT INFORMATION
  Report Type: Spontaneous
  Country: US (occurrence: US)
  Receive Date: 20180523
  Receipt Date: 20180523
  Transmission Date: 20180711
  Serious: No
  Sender: FDA-Public Use
  Company Number: US-FDC LIMITED-2017RIS00111

PATIENT
  Age: 90 Year
  Sex: Female
  Weight: 41.27 kg

DRUGS (5)
  1. TIMOLOL MALEATE. [Suspect]
     Active Substance: TIMOLOL MALEATE
     Indication: GLAUCOMA
     Dosage: 1 DROP, 2X/DAY
     Route: 047
     Dates: start: 201605, end: 20170410
  2. LATANOPROST (ALCON) [Concomitant]
  3. TIMOLOL MALEATE. [Suspect]
     Active Substance: TIMOLOL MALEATE
     Indication: DRY EYE
  4. BRIMONIDINE (AKORN) [Concomitant]
  5. VITAMIN D [Concomitant]
     Active Substance: CHOLECALCIFEROL
     Dosage: 2000 IU, 1X/DAY

REACTIONS (2)
  - Abnormal loss of weight [Recovering/Resolving]
  - Decreased appetite [Recovering/Resolving]

NARRATIVE: CASE EVENT DATE: 2016
